FAERS Safety Report 9112533 (Version 2)
Quarter: 2013Q1

REPORT INFORMATION
  Report Type: Report from Study
  Country: CA (occurrence: CA)
  Receive Date: 20130211
  Receipt Date: 20130329
  Transmission Date: 20140127
  Serious: Yes (Death, Other)
  Sender: FDA-Public Use
  Company Number: CA-ABBOTT-13P-028-1047226-00

PATIENT
  Sex: Male
  Weight: 80 kg

DRUGS (1)
  1. HUMIRA [Suspect]
     Indication: RHEUMATOID ARTHRITIS
     Route: 058
     Dates: start: 20060329, end: 201302

REACTIONS (5)
  - Cardiac failure [Fatal]
  - Sepsis [Fatal]
  - Enterobacter sepsis [Unknown]
  - Pneumonia [Unknown]
  - Clostridium difficile colitis [Unknown]
